FAERS Safety Report 23287858 (Version 1)
Quarter: 2023Q4

REPORT INFORMATION
  Report Type: Spontaneous
  Country: US (occurrence: None)
  Receive Date: 20231212
  Receipt Date: 20231212
  Transmission Date: 20240109
  Serious: Yes (Hospitalization)
  Sender: FDA-Public Use
  Company Number: None

PATIENT
  Age: 71 Year
  Sex: Female
  Weight: 90.6 kg

DRUGS (2)
  1. DEXAMETHASONE [Suspect]
     Active Substance: DEXAMETHASONE
     Dates: end: 20231205
  2. LENALIDOMIDE [Suspect]
     Active Substance: LENALIDOMIDE
     Indication: Drug therapy
     Dates: end: 20231207

REACTIONS (15)
  - Mental status changes [None]
  - Chest pain [None]
  - Cough [None]
  - Tachycardia [None]
  - Blood pressure increased [None]
  - Anaemia [None]
  - Blood potassium decreased [None]
  - Blood glucose increased [None]
  - Bacterial test positive [None]
  - Cerebellar infarction [None]
  - Cerebral ischaemia [None]
  - Lung consolidation [None]
  - Pneumonia [None]
  - Pulmonary embolism [None]
  - Therapy interrupted [None]

NARRATIVE: CASE EVENT DATE: 20231208
